FAERS Safety Report 5743530-2 (Version None)
Quarter: 2008Q2

REPORT INFORMATION
  Report Type: 
  Country: None (occurrence: None)
  Receive Date: 20080519
  Receipt Date: 20080519
  Transmission Date: 20081010
  Serious: No
  Sender: FDA-Public Use
  Company Number: None

PATIENT
  Sex: Male

DRUGS (1)
  1. LOVENOX [Suspect]
     Indication: ACUTE CORONARY SYNDROME
     Dosage: 150 MG SQ
     Route: 058
     Dates: start: 20080305, end: 20080305

REACTIONS (1)
  - PRURITUS [None]
